FAERS Safety Report 25417823 (Version 1)
Quarter: 2025Q2

REPORT INFORMATION
  Report Type: Spontaneous
  Country: FR (occurrence: FR)
  Receive Date: 20250610
  Receipt Date: 20250610
  Transmission Date: 20250717
  Serious: Yes (Death, Other)
  Sender: SANOFI AVENTIS
  Company Number: None

PATIENT
  Age: 77 Year
  Sex: Male
  Weight: 101 kg

DRUGS (14)
  1. DOCETAXEL [Suspect]
     Active Substance: DOCETAXEL
     Indication: Lung neoplasm malignant
     Route: 042
     Dates: start: 20230131, end: 20230131
  2. HERCEPTIN [Suspect]
     Active Substance: TRASTUZUMAB
     Indication: Lung neoplasm malignant
     Route: 042
     Dates: start: 20230131, end: 20230131
  3. PERJETA [Suspect]
     Active Substance: PERTUZUMAB
     Indication: Lung neoplasm malignant
     Route: 042
     Dates: start: 20230131, end: 20230131
  4. FOLIC ACID [Concomitant]
     Active Substance: FOLIC ACID
  5. FEBUXOSTAT [Concomitant]
     Active Substance: FEBUXOSTAT
  6. FUROSEMIDE [Concomitant]
     Active Substance: FUROSEMIDE
  7. LORMETAZEPAM [Concomitant]
     Active Substance: LORMETAZEPAM
  8. PANTOPRAZOLE [Concomitant]
     Active Substance: PANTOPRAZOLE
  9. RAMIPRIL [Concomitant]
     Active Substance: RAMIPRIL
  10. LIPTRUZET [Concomitant]
     Active Substance: ATORVASTATIN CALCIUM\EZETIMIBE
  11. SPIRONOLACTONE [Concomitant]
     Active Substance: SPIRONOLACTONE
  12. TRULICITY [Concomitant]
     Active Substance: DULAGLUTIDE
  13. INNOHEP [Concomitant]
     Active Substance: TINZAPARIN SODIUM
  14. BISOPROLOL FUMARATE [Concomitant]
     Active Substance: BISOPROLOL FUMARATE

REACTIONS (2)
  - Febrile bone marrow aplasia [Fatal]
  - Septic shock [Fatal]

NARRATIVE: CASE EVENT DATE: 20230206
